FAERS Safety Report 10163824 (Version 2)
Quarter: 2014Q2

REPORT INFORMATION
  Report Type: Report from Study
  Country: US (occurrence: US)
  Receive Date: 20140509
  Receipt Date: 20140611
  Transmission Date: 20141212
  Serious: Yes (Hospitalization)
  Sender: FDA-Public Use
  Company Number: US-ACTELION-A-NJ2014-98387

PATIENT
  Age: 86 Year
  Sex: Female

DRUGS (2)
  1. TRACLEER [Suspect]
     Indication: PULMONARY ARTERIAL HYPERTENSION
     Dosage: UNK
     Route: 048
  2. PRADAXA [Concomitant]

REACTIONS (11)
  - Road traffic accident [Recovered/Resolved]
  - Wrist fracture [Recovered/Resolved]
  - Craniocerebral injury [Recovered/Resolved]
  - Concussion [Recovered/Resolved]
  - Cognitive disorder [Recovered/Resolved]
  - Contusion [Recovered/Resolved]
  - Activities of daily living impaired [Recovered/Resolved]
  - Mobility decreased [Recovered/Resolved]
  - Memory impairment [Recovered/Resolved]
  - Rib fracture [Recovered/Resolved]
  - Musculoskeletal chest pain [Recovered/Resolved]
